FAERS Safety Report 19240216 (Version 2)
Quarter: 2021Q2

REPORT INFORMATION
  Report Type: Spontaneous
  Country: US (occurrence: US)
  Receive Date: 20210511
  Receipt Date: 20210519
  Transmission Date: 20210717
  Serious: Yes (Other)
  Sender: FDA-Public Use
  Company Number: US-GLENMARK PHARMACEUTICALS-2021GMK053856

PATIENT
  Age: 79 Year
  Sex: Male

DRUGS (5)
  1. EYLEA [Concomitant]
     Active Substance: AFLIBERCEPT
     Indication: CYSTOID MACULAR OEDEMA
     Dosage: UNK
     Route: 065
  2. TRIAMCINOLONE ACETONIDE. [Suspect]
     Active Substance: TRIAMCINOLONE ACETONIDE
     Indication: CYSTOID MACULAR OEDEMA
     Dosage: UNK (FORMULATION: INJECTION)
  3. PREDNISOLONE. [Concomitant]
     Active Substance: PREDNISOLONE
     Indication: CYSTOID MACULAR OEDEMA
     Dosage: UNK
     Route: 065
  4. KETOROLAC [Concomitant]
     Active Substance: KETOROLAC TROMETHAMINE
     Indication: CYSTOID MACULAR OEDEMA
     Dosage: UNK
     Route: 065
  5. AVASTIN [Concomitant]
     Active Substance: BEVACIZUMAB
     Indication: CYSTOID MACULAR OEDEMA
     Dosage: UNK
     Route: 065

REACTIONS (2)
  - Pseudoendophthalmitis [Recovering/Resolving]
  - Non-infectious endophthalmitis [Recovering/Resolving]
